FAERS Safety Report 23350729 (Version 1)
Quarter: 2023Q4

REPORT INFORMATION
  Report Type: Spontaneous
  Country: CN (occurrence: CN)
  Receive Date: 20231229
  Receipt Date: 20231229
  Transmission Date: 20240109
  Serious: Yes (Other)
  Sender: FDA-Public Use
  Company Number: CN-JNJFOC-20231255741

PATIENT

DRUGS (1)
  1. IBRUTINIB [Suspect]
     Active Substance: IBRUTINIB
     Indication: Mantle cell lymphoma
     Dosage: WITH 28 DAYS
     Route: 048

REACTIONS (10)
  - Sinus arrhythmia [Unknown]
  - Hepatotoxicity [Unknown]
  - Supraventricular extrasystoles [Unknown]
  - Diarrhoea [Unknown]
  - Hypertension [Unknown]
  - Haematotoxicity [Unknown]
  - Adverse event [Unknown]
  - Infection [Unknown]
  - Treatment noncompliance [Unknown]
  - Neutrophil count decreased [Unknown]
